FAERS Safety Report 12135091 (Version 1)
Quarter: 2016Q1

REPORT INFORMATION
  Report Type: Spontaneous
  Country: AU (occurrence: AU)
  Receive Date: 20160301
  Receipt Date: 20160301
  Transmission Date: 20160526
  Serious: Yes (Other)
  Sender: FDA-Public Use
  Company Number: PHHY2016AU026133

PATIENT
  Age: 66 Year
  Sex: Female

DRUGS (2)
  1. INGENOL MEBUTATE [Interacting]
     Active Substance: INGENOL MEBUTATE
     Indication: ACTINIC KERATOSIS
     Route: 061
  2. METHOTREXATE [Suspect]
     Active Substance: METHOTREXATE
     Indication: RHEUMATOID ARTHRITIS
     Dosage: 20 MG, QW
     Route: 065

REACTIONS (2)
  - Drug interaction [Unknown]
  - Skin reaction [Unknown]
